FAERS Safety Report 7934821-5 (Version None)
Quarter: 2011Q4

REPORT INFORMATION
  Report Type: 
  Country: None (occurrence: None)
  Receive Date: 20111122
  Receipt Date: 20111117
  Transmission Date: 20120403
  Serious: Yes (Other)
  Sender: FDA-Public Use
  Company Number: NL-PFIZER INC-2011282642

PATIENT
  Age: 48 Year
  Sex: Female

DRUGS (1)
  1. VARENICLINE TARTRATE [Suspect]
     Indication: SMOKING CESSATION THERAPY
     Dosage: 1 MG, 1X/DAY
     Dates: start: 20110411, end: 20110518

REACTIONS (3)
  - WEIGHT INCREASED [None]
  - OEDEMA PERIPHERAL [None]
  - HYPERTENSION [None]
